APPROVED DRUG PRODUCT: ZYTIGA
Active Ingredient: ABIRATERONE ACETATE
Strength: 500MG
Dosage Form/Route: TABLET;ORAL
Application: N202379 | Product #002 | TE Code: AB
Applicant: JANSSEN BIOTECH INC
Approved: Apr 14, 2017 | RLD: Yes | RS: Yes | Type: RX